FAERS Safety Report 10436364 (Version 1)
Quarter: 2014Q3

REPORT INFORMATION
  Report Type: Report from Study
  Country: US (occurrence: US)
  Receive Date: 20140908
  Receipt Date: 20140908
  Transmission Date: 20150326
  Serious: Yes (Other)
  Sender: FDA-Public Use
  Company Number: US-ABBVIE-14K-163-1277950-00

PATIENT
  Age: 56 Year
  Sex: Female
  Weight: 73.09 kg

DRUGS (9)
  1. PANCREAS [Concomitant]
     Indication: PRODUCT USED FOR UNKNOWN INDICATION
  2. LYRICA [Suspect]
     Active Substance: PREGABALIN
     Indication: PRODUCT USED FOR UNKNOWN INDICATION
  3. STEROIDS [Suspect]
     Active Substance: UNSPECIFIED INGREDIENT
     Indication: PRODUCT USED FOR UNKNOWN INDICATION
  4. PAXIL [Concomitant]
     Active Substance: PAROXETINE HYDROCHLORIDE
     Indication: PRODUCT USED FOR UNKNOWN INDICATION
  5. CORTISONE [Suspect]
     Active Substance: CORTISONE\HYDROCORTISONE
     Indication: RASH
  6. HYDROCODONE [Suspect]
     Active Substance: HYDROCODONE
     Indication: PAIN
     Dosage: 5-7 TABLETS DAILY
  7. HYDROCODONE [Suspect]
     Active Substance: HYDROCODONE
     Indication: PRODUCT USED FOR UNKNOWN INDICATION
     Dosage: 10/500
  8. HUMIRA [Suspect]
     Active Substance: ADALIMUMAB
     Indication: RHEUMATOID ARTHRITIS
     Dates: start: 2009, end: 20140719
  9. HUMIRA [Suspect]
     Active Substance: ADALIMUMAB
     Dates: start: 20140816, end: 20140816

REACTIONS (19)
  - Cataract [Recovered/Resolved]
  - Weight increased [Recovered/Resolved]
  - Weight decreased [Recovered/Resolved]
  - Drug-induced liver injury [Not Recovered/Not Resolved]
  - Hepatic enzyme increased [Recovering/Resolving]
  - Rash [Recovered/Resolved]
  - Blister [Recovering/Resolving]
  - Nasopharyngitis [Recovered/Resolved]
  - Secretion discharge [Recovering/Resolving]
  - Blister [Recovered/Resolved]
  - Rash [Recovering/Resolving]
  - Pain [Recovered/Resolved]
  - Rash erythematous [Recovering/Resolving]
  - Drug ineffective [Unknown]
  - Secretion discharge [Recovered/Resolved]
  - Rash erythematous [Recovered/Resolved]
  - Abdominal distension [Recovered/Resolved]
  - Autoimmune hepatitis [Not Recovered/Not Resolved]
  - Weight increased [Recovered/Resolved]

NARRATIVE: CASE EVENT DATE: 2010
